FAERS Safety Report 16054906 (Version 1)
Quarter: 2019Q1

REPORT INFORMATION
  Report Type: Spontaneous
  Country: JP (occurrence: JP)
  Receive Date: 20190310
  Receipt Date: 20190310
  Transmission Date: 20190418
  Serious: Yes (Life-Threatening, Hospitalization, Other)
  Sender: FDA-Public Use
  Company Number: JP-ACCORD-111464

PATIENT
  Sex: Male

DRUGS (5)
  1. CARBOPLATIN. [Suspect]
     Active Substance: CARBOPLATIN
     Indication: ROSAI-DORFMAN SYNDROME
  2. CLADRIBINE. [Suspect]
     Active Substance: CLADRIBINE
     Indication: ROSAI-DORFMAN SYNDROME
  3. ETOPOSIDE. [Suspect]
     Active Substance: ETOPOSIDE
     Indication: ROSAI-DORFMAN SYNDROME
  4. IFOSFAMIDE. [Suspect]
     Active Substance: IFOSFAMIDE
     Indication: ROSAI-DORFMAN SYNDROME
  5. PREDNISOLONE. [Suspect]
     Active Substance: PREDNISOLONE
     Indication: ROSAI-DORFMAN SYNDROME
     Dosage: DOSE ESCALATION

REACTIONS (10)
  - Gastrointestinal haemorrhage [Unknown]
  - Pneumonia bacterial [Unknown]
  - Tumour haemorrhage [Unknown]
  - Emphysema [Unknown]
  - Sepsis [Unknown]
  - Glaucoma [Unknown]
  - Pancreatic enzymes increased [Unknown]
  - Vitreous haemorrhage [Unknown]
  - Nocardiosis [Unknown]
  - Device related infection [Unknown]
